FAERS Safety Report 9728157 (Version 1)
Quarter: 2013Q4

REPORT INFORMATION
  Report Type: Spontaneous
  Country: SZ (occurrence: None)
  Receive Date: 20131202
  Receipt Date: 20131202
  Transmission Date: 20140711
  Serious: Yes (Life-Threatening, Hospitalization)
  Sender: FDA-Public Use
  Company Number: 20130675

PATIENT
  Age: 23 Year
  Sex: Female
  Weight: 60 kg

DRUGS (1)
  1. VENOFER [Suspect]
     Indication: IRON DEFICIENCY ANAEMIA
     Dosage: DOSE UNKNOWN (OVER 5 HOURS) INTRAVENOUS DRIP
     Route: 041

REACTIONS (5)
  - Hypotension [None]
  - Abdominal pain [None]
  - Nausea [None]
  - Diarrhoea [None]
  - Dyspnoea [None]
